FAERS Safety Report 20012036 (Version 2)
Quarter: 2021Q4

REPORT INFORMATION
  Report Type: Report from Study
  Country: US (occurrence: US)
  Receive Date: 20211029
  Receipt Date: 20211112
  Transmission Date: 20220303
  Serious: No
  Sender: FDA-Public Use
  Company Number: US-HBP-2021US023499

PATIENT
  Sex: Female

DRUGS (9)
  1. VALCHLOR [Suspect]
     Active Substance: MECHLORETHAMINE
     Indication: Cutaneous T-cell lymphoma
     Dosage: UNK, QD
     Route: 061
     Dates: start: 20140531
  2. PROLENSA [Concomitant]
     Active Substance: BROMFENAC SODIUM
     Dosage: ONE, AS DIRECTED
     Dates: start: 20150518
  3. PREDNISOLONE ACETATE [Concomitant]
     Active Substance: PREDNISOLONE ACETATE
     Dosage: ONE, AS DIRECTED
     Dates: start: 20150518
  4. VICODIN [Concomitant]
     Active Substance: ACETAMINOPHEN\HYDROCODONE BITARTRATE
     Dosage: ONE, PRN
     Route: 048
     Dates: start: 20140530
  5. DOXEPIN [Concomitant]
     Active Substance: DOXEPIN
     Dosage: 50 MILLIGRAM, QD
     Route: 048
     Dates: start: 20140530
  6. COREG [Concomitant]
     Active Substance: CARVEDILOL
     Dosage: UNK, UNKNOWN
     Dates: start: 20140523
  7. AMARYL [Concomitant]
     Active Substance: GLIMEPIRIDE
     Dosage: 2, UNKNOWN
     Dates: start: 20140523
  8. LYRICA [Concomitant]
     Active Substance: PREGABALIN
     Dosage: 75 MILLIGRAM, BID
     Dates: start: 20140523
  9. LISINOPRIL [Concomitant]
     Active Substance: LISINOPRIL
     Dosage: UNK, UNKNOWN
     Dates: start: 20140523

REACTIONS (3)
  - Condition aggravated [Unknown]
  - Radiation injury [Not Recovered/Not Resolved]
  - Therapeutic product effect decreased [Unknown]
